FAERS Safety Report 21476265 (Version 2)
Quarter: 2022Q4

REPORT INFORMATION
  Report Type: Spontaneous
  Country: JP (occurrence: JP)
  Receive Date: 20221019
  Receipt Date: 20221201
  Transmission Date: 20230113
  Serious: Yes (Life-Threatening, Hospitalization)
  Sender: FDA-Public Use
  Company Number: JP-ABBVIE-22K-087-4517175-00

PATIENT
  Age: 60 Year
  Sex: Female
  Weight: 48 kg

DRUGS (1)
  1. RINVOQ [Suspect]
     Active Substance: UPADACITINIB
     Indication: Dermatitis atopic
     Dosage: FORM STRENGTH: 30 MILLIGRAMS
     Route: 048
     Dates: start: 20220604, end: 20220818

REACTIONS (7)
  - Interstitial lung disease [Recovering/Resolving]
  - Blood cholesterol increased [Unknown]
  - Blood triglycerides increased [Unknown]
  - Liver disorder [Recovered/Resolved]
  - Blood creatine phosphokinase increased [Unknown]
  - Rhabdomyolysis [Recovered/Resolved]
  - Acute kidney injury [Recovering/Resolving]

NARRATIVE: CASE EVENT DATE: 20220801
